FAERS Safety Report 7128410-2 (Version None)
Quarter: 2010Q4

REPORT INFORMATION
  Report Type: 
  Country: None (occurrence: None)
  Receive Date: 20101130
  Receipt Date: 20101123
  Transmission Date: 20110411
  Serious: Yes (Hospitalization)
  Sender: FDA-Public Use
  Company Number: PHHO2010FR17243

PATIENT
  Sex: Female
  Weight: 39 kg

DRUGS (3)
  1. MYCOPHENOLIC ACID [Suspect]
     Indication: RENAL TRANSPLANT
     Dosage: 1440 MG
     Route: 048
     Dates: start: 20100303
  2. MYCOPHENOLIC ACID [Suspect]
     Dosage: 360 MG, BID
     Route: 048
  3. MYCOPHENOLIC ACID [Suspect]
     Dosage: 180 MG, BID
     Route: 048
     Dates: end: 20101103

REACTIONS (3)
  - CYTOMEGALOVIRUS INFECTION [None]
  - DRUG TOXICITY [None]
  - PANCYTOPENIA [None]
